FAERS Safety Report 20735963 (Version 3)
Quarter: 2022Q2

REPORT INFORMATION
  Report Type: Spontaneous
  Country: US (occurrence: US)
  Receive Date: 20220421
  Receipt Date: 20220509
  Transmission Date: 20220721
  Serious: Yes (Hospitalization)
  Sender: FDA-Public Use
  Company Number: US-HORIZON THERAPEUTICS-HZN-2022-002857

PATIENT

DRUGS (6)
  1. KRYSTEXXA [Suspect]
     Active Substance: PEGLOTICASE
     Indication: Gout
     Dosage: 1ST INFUSION
     Route: 042
  2. KRYSTEXXA [Suspect]
     Active Substance: PEGLOTICASE
     Dosage: UNK (INFUSION)
     Route: 042
     Dates: start: 202110
  3. KRYSTEXXA [Suspect]
     Active Substance: PEGLOTICASE
     Dosage: UNK (INFUSION)
     Route: 042
     Dates: start: 202111
  4. KRYSTEXXA [Suspect]
     Active Substance: PEGLOTICASE
     Dosage: UNK (INFUSION)
     Route: 042
     Dates: start: 202112
  5. UNSPECIFIED INGREDIENT [Suspect]
     Active Substance: UNSPECIFIED INGREDIENT
     Indication: Premedication
     Route: 042
  6. AZATHIOPRINE [Concomitant]
     Active Substance: AZATHIOPRINE
     Indication: Immunomodulatory therapy
     Route: 048

REACTIONS (3)
  - Pyrexia [Recovered/Resolved]
  - Gout [Recovered/Resolved]
  - Infusion related reaction [Unknown]
